FAERS Safety Report 24540304 (Version 1)
Quarter: 2024Q4

REPORT INFORMATION
  Report Type: Spontaneous
  Country: FR (occurrence: FR)
  Receive Date: 20241023
  Receipt Date: 20241023
  Transmission Date: 20250115
  Serious: Yes (Life-Threatening, Hospitalization, Other)
  Sender: BAUSCH AND LOMB
  Company Number: FR-RECORDATI-2024007545

PATIENT
  Age: 19 Year
  Sex: Female
  Weight: 60 kg

DRUGS (14)
  1. VENLAFAXINE HYDROCHLORIDE [Suspect]
     Active Substance: VENLAFAXINE HYDROCHLORIDE
     Indication: Schizophrenia
     Dosage: 187.5 MILLIGRAM, QD
     Route: 048
     Dates: end: 20240626
  2. VENLAFAXINE HYDROCHLORIDE [Suspect]
     Active Substance: VENLAFAXINE HYDROCHLORIDE
     Dosage: 187.5 MILLIGRAM, QD
     Route: 048
     Dates: end: 20240626
  3. METOPROLOL [Suspect]
     Active Substance: METOPROLOL
     Indication: Product used for unknown indication
     Route: 048
     Dates: start: 20240627, end: 20240627
  4. METOPROLOL [Suspect]
     Active Substance: METOPROLOL
     Route: 048
     Dates: start: 20240627, end: 20240627
  5. METOPROLOL [Suspect]
     Active Substance: METOPROLOL
     Route: 048
     Dates: start: 20240627, end: 20240627
  6. METOPROLOL [Suspect]
     Active Substance: METOPROLOL
     Route: 048
     Dates: start: 20240627, end: 20240627
  7. RISPERDAL [Suspect]
     Active Substance: RISPERIDONE
     Indication: Schizophrenia
     Route: 048
     Dates: end: 20240626
  8. RISPERDAL [Suspect]
     Active Substance: RISPERIDONE
     Route: 048
     Dates: end: 20240626
  9. COCAINE [Suspect]
     Active Substance: COCAINE
     Indication: Product used for unknown indication
     Dosage: 1 GRAM, (2 DAYS)
     Route: 065
     Dates: start: 20240626, end: 20240627
  10. COCAINE [Suspect]
     Active Substance: COCAINE
     Dosage: 1 GRAM, (2 DAYS)
     Route: 065
     Dates: start: 20240626, end: 20240627
  11. ALPRAZOLAM [Suspect]
     Active Substance: ALPRAZOLAM
     Indication: Product used for unknown indication
     Route: 048
     Dates: end: 20240626
  12. ALPRAZOLAM [Suspect]
     Active Substance: ALPRAZOLAM
     Dosage: UNK
     Route: 048
     Dates: end: 20240626
  13. CLOZAPINE [Suspect]
     Active Substance: CLOZAPINE
     Indication: Product used for unknown indication
     Route: 048
     Dates: start: 20240627, end: 20240627
  14. CLOZAPINE [Suspect]
     Active Substance: CLOZAPINE
     Route: 048
     Dates: start: 20240627, end: 20240627

REACTIONS (7)
  - Respiratory depression [Recovered/Resolved]
  - Drug abuse [Recovered/Resolved]
  - Cardiogenic shock [Recovered/Resolved]
  - Depressed level of consciousness [Recovered/Resolved]
  - Agitation [Recovered/Resolved]
  - Suicide attempt [Recovered/Resolved]
  - Electrocardiogram QT prolonged [Recovered/Resolved]

NARRATIVE: CASE EVENT DATE: 20240627
